FAERS Safety Report 21095748 (Version 2)
Quarter: 2022Q3

REPORT INFORMATION
  Report Type: Spontaneous
  Country: FR (occurrence: None)
  Receive Date: 20220718
  Receipt Date: 20220728
  Transmission Date: 20221027
  Serious: Yes (Life-Threatening)
  Sender: FDA-Public Use
  Company Number: 2022A256436

PATIENT
  Age: 35 Year
  Sex: Male
  Weight: 70 kg

DRUGS (6)
  1. QUETIAPINE [Interacting]
     Active Substance: QUETIAPINE
     Indication: Psychotic disorder
     Route: 048
     Dates: end: 20211208
  2. VALPROATE SODIUM [Interacting]
     Active Substance: VALPROATE SODIUM
     Indication: Psychotic disorder
     Route: 048
     Dates: end: 20211208
  3. LOXAPINE [Interacting]
     Active Substance: LOXAPINE
     Indication: Psychotic disorder
     Dosage: 50.0MG INTERMITTENT
     Route: 048
     Dates: end: 20211208
  4. LEVOMEPROMAZINE [Interacting]
     Active Substance: LEVOMEPROMAZINE
     Indication: Psychotic disorder
     Route: 048
     Dates: end: 20211208
  5. MILNACIPRAN HYDROCHLORIDE [Interacting]
     Active Substance: MILNACIPRAN HYDROCHLORIDE
     Indication: Psychotic disorder
     Route: 048
     Dates: end: 20211208
  6. VALIUM [Interacting]
     Active Substance: DIAZEPAM
     Indication: Psychotic disorder
     Route: 048
     Dates: end: 20211208

REACTIONS (2)
  - Drug interaction [Recovered/Resolved]
  - Intestinal obstruction [Recovered/Resolved]

NARRATIVE: CASE EVENT DATE: 20211208
